FAERS Safety Report 5482586-1 (Version None)
Quarter: 2007Q4

REPORT INFORMATION
  Report Type: 
  Country: None (occurrence: None)
  Receive Date: 20071011
  Receipt Date: 20071001
  Transmission Date: 20080405
  Serious: No
  Sender: FDA-Public Use
  Company Number: A0665783A

PATIENT
  Age: 71 Year
  Sex: Female
  Weight: 80 kg

DRUGS (2)
  1. TYKERB [Suspect]
     Indication: BREAST CANCER
     Dosage: 1250MG PER DAY
     Route: 048
     Dates: start: 20070719, end: 20070721
  2. GEMCITABINE HCL [Suspect]
     Indication: BREAST CANCER
     Route: 042
     Dates: start: 20070712, end: 20070823

REACTIONS (1)
  - DIARRHOEA [None]
